FAERS Safety Report 26078464 (Version 1)
Quarter: 2025Q4

REPORT INFORMATION
  Report Type: Spontaneous
  Country: EU (occurrence: EU)
  Receive Date: 20251123
  Receipt Date: 20251123
  Transmission Date: 20260118
  Serious: Yes (Death, Other)
  Sender: ALEXION PHARMACEUTICALS
  Company Number: EU-ASTRAZENECA-202511EEA017420AT

PATIENT
  Age: 67 Year
  Sex: Male

DRUGS (9)
  1. IMFINZI [Suspect]
     Active Substance: DURVALUMAB
     Indication: Lung adenocarcinoma stage III
     Dosage: POSEIDON REGIMEN, Q3W, 4 CYCLES
     Route: 065
     Dates: start: 20230601
  2. IMFINZI [Suspect]
     Active Substance: DURVALUMAB
     Dosage: Q4W UNTIL PROGRESSION, MAINTENANCE THERAPY
     Route: 065
  3. CISPLATIN [Suspect]
     Active Substance: CISPLATIN
     Indication: Lung adenocarcinoma stage III
     Dosage: NEOADJUVANT CHEMOTHERAPY
     Route: 065
  4. CISPLATIN [Suspect]
     Active Substance: CISPLATIN
     Dosage: 2 CYCLES, NOV/DEC 2018
     Route: 065
  5. DOCETAXEL [Suspect]
     Active Substance: DOCETAXEL
     Indication: Lung adenocarcinoma stage III
     Dosage: 2 CYCLES, NOV/DEC 2018
     Route: 065
  6. CARBOPLATIN [Concomitant]
     Active Substance: CARBOPLATIN
     Indication: Lung adenocarcinoma stage IV
     Dosage: POSEIDON REGIMEN
     Route: 065
  7. PEMETREXED [Concomitant]
     Active Substance: PEMETREXED
     Indication: Lung adenocarcinoma stage IV
     Dosage: POSEIDON REGIMEN
     Route: 065
  8. TREMELIMUMAB [Concomitant]
     Active Substance: TREMELIMUMAB
     Indication: Lung adenocarcinoma stage IV
     Dosage: POSEIDON REGIMEN, Q3W, 4 CYCLES
     Route: 065
     Dates: start: 20230601
  9. TREMELIMUMAB [Concomitant]
     Active Substance: TREMELIMUMAB
     Dosage: Q4W (WEEK 16 ONLY), MAINTENANCE THERAPY
     Route: 065

REACTIONS (4)
  - Death [Fatal]
  - Disease recurrence [Unknown]
  - Malignant neoplasm progression [Unknown]
  - Hyperglycaemia [Unknown]

NARRATIVE: CASE EVENT DATE: 20240101
